FAERS Safety Report 8514248-8 (Version None)
Quarter: 2012Q2

REPORT INFORMATION
  Report Type: 
  Country: None (occurrence: None)
  Receive Date: 20120406
  Receipt Date: 20120202
  Transmission Date: 20120825
  Serious: No
  Sender: FDA-Public Use
  Company Number: US-CYPR-2012-000004

PATIENT
  Sex: Male
  Weight: 73 kg

DRUGS (6)
  1. PRAVASTATIN [Concomitant]
  2. XIENCE   V [Concomitant]
  3. CLOPIDOGREL [Suspect]
     Indication: ANTIPLATELET THERAPY
     Dosage: (75 MG ORAL)
     Route: 048
     Dates: start: 20101130, end: 20120105
  4. CYPHER STENT [Concomitant]
  5. ASPIRIN [Suspect]
     Indication: CORONARY ARTERY DISEASE
     Dosage: (81 MG ORAL)
     Route: 048
     Dates: start: 20091203
  6. OMEPRAZOLE [Concomitant]

REACTIONS (1)
  - OESOPHAGEAL CARCINOMA [None]
